FAERS Safety Report 17775752 (Version 6)
Quarter: 2023Q4

REPORT INFORMATION
  Report Type: Report from Study
  Country: US (occurrence: US)
  Receive Date: 20200513
  Receipt Date: 20231009
  Transmission Date: 20240109
  Serious: Yes (Hospitalization, Other)
  Sender: FDA-Public Use
  Company Number: US-ACADIA PHARMACEUTICALS INC.-ACA-2020-PIM-001283

PATIENT
  Sex: Male

DRUGS (33)
  1. NUPLAZID [Suspect]
     Active Substance: PIMAVANSERIN TARTRATE
     Indication: Parkinson^s disease
     Dosage: 34 MILLIGRAM, QD
     Route: 048
     Dates: start: 20200206
  2. NUPLAZID [Suspect]
     Active Substance: PIMAVANSERIN TARTRATE
     Indication: Parkinson^s disease psychosis
  3. ENTRESTO [Suspect]
     Active Substance: SACUBITRIL\VALSARTAN
  4. RYTARY [Suspect]
     Active Substance: CARBIDOPA\LEVODOPA
  5. AMANTADINE [Concomitant]
     Active Substance: AMANTADINE
  6. ATORVASTATIN [Concomitant]
     Active Substance: ATORVASTATIN
  7. VERAPAMIL [Concomitant]
     Active Substance: VERAPAMIL HYDROCHLORIDE
     Dosage: ER
  8. PANTOPRAZOLE [Concomitant]
     Active Substance: PANTOPRAZOLE
  9. FINASTERIDE [Concomitant]
     Active Substance: FINASTERIDE
  10. CALTRATE [Concomitant]
     Active Substance: CALCIUM CARBONATE
  11. RESTASIS [Concomitant]
     Active Substance: CYCLOSPORINE
  12. SYNTHROID [Concomitant]
     Active Substance: LEVOTHYROXINE SODIUM
  13. RASAGILINE [Concomitant]
     Active Substance: RASAGILINE
  14. METOPROLOL [Concomitant]
     Active Substance: METOPROLOL
  15. DONEPEZIL [Concomitant]
     Active Substance: DONEPEZIL
  16. MEMANTINE [Concomitant]
     Active Substance: MEMANTINE
  17. VITAMIN D3 [Concomitant]
     Active Substance: CHOLECALCIFEROL
  18. MIRALAX [Concomitant]
     Active Substance: POLYETHYLENE GLYCOL 3350
  19. VITAMINS [Concomitant]
     Active Substance: VITAMINS
  20. VITAMIN D NOS [Concomitant]
     Active Substance: VITAMIN D NOS
  21. METAMUCIL [Concomitant]
     Active Substance: PLANTAGO SEED
  22. RYTARY [Concomitant]
     Active Substance: CARBIDOPA\LEVODOPA
  23. ENTRESTO [Concomitant]
     Active Substance: SACUBITRIL\VALSARTAN
  24. ATORVASTATIN CALCIUM [Concomitant]
     Active Substance: ATORVASTATIN CALCIUM
  25. ASPIRIN [Concomitant]
     Active Substance: ASPIRIN
  26. CALTRATE D [CALCIUM;COLECALCIFEROL] [Concomitant]
  27. DONEPEZIL HYDROCHLORIDE [Concomitant]
     Active Substance: DONEPEZIL HYDROCHLORIDE
  28. MEMANTINE [Concomitant]
     Active Substance: MEMANTINE
  29. METOPROLOL SUCCINATE [Concomitant]
     Active Substance: METOPROLOL SUCCINATE
  30. NOURIANZ [Concomitant]
     Active Substance: ISTRADEFYLLINE
  31. PANTOPRAZOLE SODIUM [Concomitant]
     Active Substance: PANTOPRAZOLE SODIUM
  32. RASAGILINE MESYLATE [Concomitant]
     Active Substance: RASAGILINE MESYLATE
  33. TYLENOL [Concomitant]
     Active Substance: ACETAMINOPHEN

REACTIONS (10)
  - Unresponsive to stimuli [Unknown]
  - Blood pressure increased [Unknown]
  - Staring [Unknown]
  - Therapeutic product effect incomplete [Unknown]
  - Blood pressure decreased [Unknown]
  - Hallucination [Not Recovered/Not Resolved]
  - Drug ineffective [Unknown]
  - Hallucination [Not Recovered/Not Resolved]
  - Drug ineffective [Not Recovered/Not Resolved]
  - Hallucination, visual [Unknown]
